FAERS Safety Report 6647037-X (Version None)
Quarter: 2010Q1

REPORT INFORMATION
  Report Type: 
  Country: None (occurrence: None)
  Receive Date: 20100323
  Receipt Date: 20100312
  Transmission Date: 20100710
  Serious: Yes (Death)
  Sender: FDA-Public Use
  Company Number: US-JNJFOC-20100305926

PATIENT
  Age: 45 Year
  Sex: Male

DRUGS (3)
  1. EXTRA STRENGTH TYLENOL PM [Suspect]
     Indication: INSOMNIA
     Dosage: ABOUT 5 NIGHTS PER WEEK
     Route: 048
  2. BENICAR [Concomitant]
     Indication: HYPERTENSION
     Route: 048
  3. NEURONTIN [Concomitant]
     Indication: RESTLESS LEGS SYNDROME
     Route: 048

REACTIONS (2)
  - CARDIAC DISORDER [None]
  - PRODUCT QUALITY ISSUE [None]
